FAERS Safety Report 16501230 (Version 1)
Quarter: 2019Q3

REPORT INFORMATION
  Report Type: Spontaneous
  Country: US (occurrence: US)
  Receive Date: 20190701
  Receipt Date: 20190701
  Transmission Date: 20191004
  Serious: Yes (Other)
  Sender: FDA-Public Use
  Company Number: US-PFIZER INC-2019278641

PATIENT
  Age: 76 Year
  Sex: Female

DRUGS (2)
  1. PROTONIX [Suspect]
     Active Substance: PANTOPRAZOLE SODIUM
     Indication: ULCER
  2. PROTONIX [Suspect]
     Active Substance: PANTOPRAZOLE SODIUM
     Indication: DYSPEPSIA
     Dosage: 1 BOTTLE INJECTED IN A BAG 3-4 DAYS WEEK
     Dates: start: 2019

REACTIONS (4)
  - Macular degeneration [Unknown]
  - Off label use [Unknown]
  - Blindness unilateral [Unknown]
  - Product use issue [Unknown]

NARRATIVE: CASE EVENT DATE: 2019
